FAERS Safety Report 7092819-6 (Version None)
Quarter: 2010Q4

REPORT INFORMATION
  Report Type: 
  Country: None (occurrence: None)
  Receive Date: 20101110
  Receipt Date: 20101101
  Transmission Date: 20110411
  Serious: No
  Sender: FDA-Public Use
  Company Number: US-PFIZER INC-2010139517

PATIENT
  Sex: Female
  Weight: 105.67 kg

DRUGS (2)
  1. LIPITOR [Suspect]
     Indication: BLOOD CHOLESTEROL ABNORMAL
     Dosage: 10 MG, 1X/DAY
     Route: 048
     Dates: start: 20101021
  2. VERAPAMIL [Concomitant]
     Indication: HYPERTENSION
     Dosage: 180 MG, 1X/DAY

REACTIONS (1)
  - MUSCLE SPASMS [None]
